FAERS Safety Report 9043958 (Version 1)
Quarter: 2013Q1

REPORT INFORMATION
  Report Type: Report from Study
  Country: US (occurrence: US)
  Receive Date: 20130130
  Receipt Date: 20130130
  Transmission Date: 20140127
  Serious: No
  Sender: FDA-Public Use
  Company Number: US-ABBOTT-12P-163-0949463-00

PATIENT
  Age: 26 Year
  Sex: Female

DRUGS (5)
  1. HUMIRA 40 MG/0.8 ML PEN [Suspect]
     Indication: PSORIASIS
     Dates: start: 201204
  2. ELMIRON [Concomitant]
     Indication: CYSTITIS INTERSTITIAL
  3. TRAMADOL [Concomitant]
     Indication: PAIN
  4. LORAZEPAM [Concomitant]
     Indication: ANXIETY
  5. BUTALBITAL [Concomitant]
     Indication: TENSION

REACTIONS (5)
  - Abdominal pain [Recovering/Resolving]
  - Muscle spasms [Unknown]
  - Back pain [Recovering/Resolving]
  - Abdominal pain upper [Recovering/Resolving]
  - Injection site pain [Unknown]
